FAERS Safety Report 9677509 (Version 2)
Quarter: 2013Q4

REPORT INFORMATION
  Report Type: Spontaneous
  Country: US (occurrence: US)
  Receive Date: 20131108
  Receipt Date: 20131108
  Transmission Date: 20140711
  Serious: Yes (Hospitalization, Other)
  Sender: FDA-Public Use
  Company Number: PHHY2013US116845

PATIENT
  Age: 73 Year
  Sex: Female
  Weight: 59.86 kg

DRUGS (6)
  1. ENABLEX [Suspect]
     Indication: POLLAKIURIA
     Dosage: 15 MG, DAILY
     Route: 048
     Dates: end: 201306
  2. ENABLEX [Suspect]
     Dosage: 7.5 MG, DAILY
     Route: 048
     Dates: start: 20130814, end: 201308
  3. ENABLEX [Suspect]
     Dosage: 15 MG, DAILY
     Route: 048
  4. SYNTHROID [Concomitant]
     Dosage: UNK UKN, UNK
  5. PRAVASTATIN [Concomitant]
     Dosage: UNK UKN, UNK
  6. VITAMIN D2 [Concomitant]
     Dosage: UNK UKN, UNK

REACTIONS (10)
  - Bladder prolapse [Recovered/Resolved]
  - Vaginal prolapse [Unknown]
  - Cystocele [Unknown]
  - Rectocele [Unknown]
  - Enterocele [Unknown]
  - Vulvovaginal pain [Unknown]
  - Nocturia [Recovered/Resolved]
  - Cystitis [Recovered/Resolved]
  - Burning sensation [Recovered/Resolved]
  - Sensation of pressure [Recovered/Resolved]
